FAERS Safety Report 4431766-2 (Version None)
Quarter: 2004Q3

REPORT INFORMATION
  Report Type: 
  Country: None (occurrence: None)
  Receive Date: 20040818
  Receipt Date: 20040802
  Transmission Date: 20050211
  Serious: Yes (Hospitalization)
  Sender: FDA-Public Use
  Company Number: 2004-BP-01833NB

PATIENT
  Age: 53 Year
  Sex: Male

DRUGS (4)
  1. BI-SIFROL TABLETS (PRAMIPEXOLE DIHYDROCHLORIDE) (TA) [Suspect]
     Indication: PARKINSON'S DISEASE
     Dosage: 0.5 MG (0.5 MG) PO
     Route: 048
     Dates: end: 20040308
  2. BLOPRESS (CANDESARTAN CILEXETIL) [Concomitant]
  3. NIFEDIPINE [Concomitant]
  4. SINEMET [Concomitant]

REACTIONS (1)
  - APNOEA [None]
